FAERS Safety Report 12765918 (Version 1)
Quarter: 2016Q3

REPORT INFORMATION
  Report Type: Spontaneous
  Country: JP (occurrence: JP)
  Receive Date: 20160921
  Receipt Date: 20160921
  Transmission Date: 20161109
  Serious: Yes (Hospitalization)
  Sender: FDA-Public Use
  Company Number: PHJP2016JP026584

PATIENT
  Sex: Male

DRUGS (2)
  1. COSENTYX [Suspect]
     Active Substance: SECUKINUMAB
     Indication: PSORIASIS
     Dosage: 300 MG, PER ADMINISTRATION
     Route: 058
     Dates: start: 20160616, end: 20160811
  2. COSENTYX [Suspect]
     Active Substance: SECUKINUMAB
     Dosage: 300 MG, PER ADMINISTRATION
     Route: 058
     Dates: start: 20160811, end: 20160811

REACTIONS (5)
  - Arthralgia [Unknown]
  - Joint swelling [Unknown]
  - Erythema [Unknown]
  - Cellulitis [Recovered/Resolved]
  - Joint warmth [Unknown]

NARRATIVE: CASE EVENT DATE: 20160811
